FAERS Safety Report 12684487 (Version 3)
Quarter: 2016Q4

REPORT INFORMATION
  Report Type: Spontaneous
  Country: BR (occurrence: BR)
  Receive Date: 20160825
  Receipt Date: 20161005
  Transmission Date: 20170207
  Serious: Yes (Hospitalization, Other)
  Sender: FDA-Public Use
  Company Number: BR-TEVA-685920ROM

PATIENT
  Age: 67 Year
  Sex: Female
  Weight: 62.9 kg

DRUGS (12)
  1. BRASART HCT [Concomitant]
     Active Substance: HYDROCHLOROTHIAZIDE\VALSARTAN
     Indication: HYPERTENSION
  2. NUJOL [Concomitant]
  3. TEVAETOPO [Suspect]
     Active Substance: ETOPOSIDE
     Indication: ENDOCRINE NEOPLASM MALIGNANT
  4. TEVAETOPO [Suspect]
     Active Substance: ETOPOSIDE
     Indication: GASTROINTESTINAL NEOPLASM
     Route: 042
     Dates: start: 20160713
  5. BROMOPRIDE [Concomitant]
     Active Substance: BROMOPRIDE
  6. PANTOPRAZOLE [Concomitant]
     Active Substance: PANTOPRAZOLE SODIUM
  7. PARACETAMOL [Concomitant]
     Active Substance: ACETAMINOPHEN
  8. OMEGA 3 [Concomitant]
     Active Substance: OMEGA-3 FATTY ACIDS
  9. FAULDCISPLA [Suspect]
     Active Substance: CISPLATIN
     Indication: GASTROINTESTINAL NEOPLASM
     Route: 042
     Dates: start: 20160713
  10. NAUSEDRON [Concomitant]
     Active Substance: ONDANSETRON HYDROCHLORIDE
  11. DECADRON [Concomitant]
     Active Substance: DEXAMETHASONE
  12. PLASIL [Concomitant]
     Active Substance: METOCLOPRAMIDE HYDROCHLORIDE

REACTIONS (3)
  - Hypotension [Recovered/Resolved]
  - Febrile neutropenia [Recovered/Resolved]
  - Haemodynamic instability [Recovered/Resolved]

NARRATIVE: CASE EVENT DATE: 20160727
